FAERS Safety Report 24255014 (Version 3)
Quarter: 2024Q3

REPORT INFORMATION
  Report Type: Spontaneous
  Country: US (occurrence: US)
  Receive Date: 20240827
  Receipt Date: 20240923
  Transmission Date: 20241017
  Serious: No
  Sender: PFIZER
  Company Number: US-PFIZER INC-PV202400111390

PATIENT
  Age: 67 Year
  Sex: Female

DRUGS (2)
  1. IBRANCE [Suspect]
     Active Substance: PALBOCICLIB
     Dosage: 125 MG
  2. IBRANCE [Suspect]
     Active Substance: PALBOCICLIB
     Dosage: 100 MG

REACTIONS (7)
  - Diarrhoea [Unknown]
  - Alopecia [Unknown]
  - Neutrophil count decreased [Unknown]
  - Oral disorder [Unknown]
  - Fatigue [Unknown]
  - Stomatitis [Unknown]
  - Cystitis [Unknown]
